FAERS Safety Report 15628400 (Version 1)
Quarter: 2018Q4

REPORT INFORMATION
  Report Type: Spontaneous
  Country: CA (occurrence: CA)
  Receive Date: 20181116
  Receipt Date: 20181116
  Transmission Date: 20190205
  Serious: Yes (Death)
  Sender: FDA-Public Use
  Company Number: CA-PURDUE PHARMA-CAN-2018-0009235

PATIENT
  Age: 40 Year
  Sex: Male
  Weight: 102 kg

DRUGS (13)
  1. NORVIR [Concomitant]
     Active Substance: RITONAVIR
  2. CLONIDINE. [Concomitant]
     Active Substance: CLONIDINE
  3. CITALOPRAM [Concomitant]
     Active Substance: CITALOPRAM HYDROBROMIDE
     Dosage: UNK
  4. CLONAZEPAM. [Concomitant]
     Active Substance: CLONAZEPAM
  5. VIAGRA [Concomitant]
     Active Substance: SILDENAFIL CITRATE
  6. CITALOPRAM [Concomitant]
     Active Substance: CITALOPRAM HYDROBROMIDE
     Dosage: UNK
  7. METHAMPHETAMINE [Suspect]
     Active Substance: METHAMPHETAMINE
     Indication: PRODUCT USED FOR UNKNOWN INDICATION
     Dosage: UNK
     Route: 065
  8. CIALIS [Concomitant]
     Active Substance: TADALAFIL
  9. PREZISTA [Concomitant]
     Active Substance: DARUNAVIR ETHANOLATE
  10. OXYCODONE HYDROCHLORIDE. [Suspect]
     Active Substance: OXYCODONE HYDROCHLORIDE
     Indication: PRODUCT USED FOR UNKNOWN INDICATION
     Dosage: UNK
     Route: 065
  11. DOCUSATE [Concomitant]
     Active Substance: DOCUSATE
  12. METHADONE [Concomitant]
     Active Substance: METHADONE HYDROCHLORIDE
  13. TRUVADA [Concomitant]
     Active Substance: EMTRICITABINE\TENOFOVIR DISOPROXIL FUMARATE

REACTIONS (4)
  - Overdose [Fatal]
  - Postmortem blood drug level increased [Fatal]
  - Opiates positive [Fatal]
  - Amphetamines positive [Fatal]
